FAERS Safety Report 15634338 (Version 1)
Quarter: 2018Q4

REPORT INFORMATION
  Report Type: Spontaneous
  Country: US (occurrence: US)
  Receive Date: 20181119
  Receipt Date: 20181119
  Transmission Date: 20190205
  Serious: Yes (Life-Threatening, Hospitalization, Disabling)
  Sender: FDA-Public Use
  Company Number: None

PATIENT
  Age: 38 Year
  Sex: Female
  Weight: 54 kg

DRUGS (5)
  1. ELIQUIS [Concomitant]
     Active Substance: APIXABAN
  2. VITAMIN D [Concomitant]
     Active Substance: CHOLECALCIFEROL
  3. MULTIVITAMIN [Concomitant]
     Active Substance: VITAMINS
  4. GADOLINIUM [Suspect]
     Active Substance: GADOLINIUM
     Indication: IMAGING PROCEDURE
     Dosage: ?          QUANTITY:1 INJECTION(S);OTHER FREQUENCY:1 X;?
     Route: 042
  5. ZOPHRAN [Concomitant]

REACTIONS (20)
  - Renal pain [None]
  - Bone pain [None]
  - Protein urine [None]
  - Cells in urine [None]
  - Dyspnoea [None]
  - Haematuria [None]
  - Eye operation [None]
  - Headache [None]
  - Pain in extremity [None]
  - Osteopenia [None]
  - Lymphadenopathy [None]
  - Nausea [None]
  - Bedridden [None]
  - Amnesia [None]
  - Nuclear magnetic resonance imaging brain abnormal [None]
  - Hypercoagulation [None]
  - Disability [None]
  - Injection site rash [None]
  - Musculoskeletal chest pain [None]
  - Bone marrow failure [None]

NARRATIVE: CASE EVENT DATE: 20090301
